FAERS Safety Report 9201954 (Version 1)
Quarter: 2013Q2

REPORT INFORMATION
  Report Type: Spontaneous
  Country: US (occurrence: US)
  Receive Date: 20130401
  Receipt Date: 20130401
  Transmission Date: 20140414
  Serious: Yes (Other)
  Sender: FDA-Public Use
  Company Number: US-PERRIGO-13US003033

PATIENT
  Age: 3 Year
  Sex: Female
  Weight: 15.42 kg

DRUGS (1)
  1. DIPHENHYDRAMINE HYDROCHLORIDE [Suspect]
     Indication: ACCIDENTAL EXPOSURE TO PRODUCT
     Dosage: 97.5 MG, SINGLE
     Route: 048
     Dates: start: 20130321, end: 20130321

REACTIONS (2)
  - Accidental overdose [Recovered/Resolved]
  - Somnolence [Recovered/Resolved]
